FAERS Safety Report 8397665-9 (Version None)
Quarter: 2012Q2

REPORT INFORMATION
  Report Type: 
  Country: None (occurrence: None)
  Receive Date: 20120531
  Receipt Date: 20120525
  Transmission Date: 20120825
  Serious: No
  Sender: FDA-Public Use
  Company Number: US-PFIZER INC-2012095154

PATIENT
  Sex: Male

DRUGS (2)
  1. BEXTRA [Suspect]
     Dosage: UNK
     Route: 048
  2. BACTRIM [Suspect]
     Dosage: UNK

REACTIONS (4)
  - DRUG HYPERSENSITIVITY [None]
  - RASH [None]
  - SKIN EXFOLIATION [None]
  - ERYTHEMA [None]
